FAERS Safety Report 4661584-1 (Version None)
Quarter: 2005Q2

REPORT INFORMATION
  Report Type: 
  Country: None (occurrence: None)
  Receive Date: 20050511
  Receipt Date: 20050511
  Transmission Date: 20051028
  Serious: Yes (Hospitalization)
  Sender: FDA-Public Use
  Company Number: None

PATIENT
  Age: 66 Year
  Sex: Male

DRUGS (3)
  1. WARFARIN [Suspect]
     Indication: ATRIAL FIBRILLATION
     Dosage: 4 MG QD
     Dates: start: 20000501
  2. CIPROFLOXACIN [Suspect]
     Indication: INFECTION
     Dosage: 500 MG BID X 28 DAYS
     Dates: start: 20050220
  3. SALSALATE [Concomitant]

REACTIONS (1)
  - HAEMATURIA [None]
